FAERS Safety Report 8962763 (Version 1)
Quarter: 2012Q4

REPORT INFORMATION
  Report Type: 
  Country: ES (occurrence: ES)
  Receive Date: 20121214
  Receipt Date: 20121214
  Transmission Date: 20130627
  Serious: Yes (Hospitalization)
  Sender: FDA-Public Use
  Company Number: ES-JNJFOC-20121204454

PATIENT
  Age: 69 Year
  Sex: Female

DRUGS (4)
  1. PALEXIA RETARD [Suspect]
     Indication: BACK PAIN
     Route: 048
  2. PALEXIA RETARD [Suspect]
     Indication: BACK PAIN
     Route: 048
     Dates: start: 20120321, end: 20120915
  3. GABAPENTIN [Suspect]
     Indication: BACK PAIN
     Route: 048
     Dates: start: 20120312, end: 20120915
  4. ZALDIAR [Concomitant]
     Indication: BACK PAIN
     Route: 048
     Dates: start: 20120321

REACTIONS (4)
  - Diverticulitis [Recovered/Resolved]
  - Decreased appetite [Unknown]
  - Weight decreased [Unknown]
  - Abdominal pain [Unknown]
